FAERS Safety Report 19813623 (Version 1)
Quarter: 2021Q3

REPORT INFORMATION
  Report Type: Spontaneous
  Country: US (occurrence: US)
  Receive Date: 20210909
  Receipt Date: 20210909
  Transmission Date: 20211014
  Serious: Yes (Hospitalization)
  Sender: FDA-Public Use
  Company Number: None

PATIENT
  Age: 59 Year
  Sex: Male

DRUGS (1)
  1. OTEZLA [Suspect]
     Active Substance: APREMILAST
     Dates: start: 20210823, end: 20210908

REACTIONS (7)
  - Diarrhoea [None]
  - Depression [None]
  - Balance disorder [None]
  - Dyspnoea [None]
  - Abdominal pain upper [None]
  - Throat tightness [None]
  - Headache [None]

NARRATIVE: CASE EVENT DATE: 20210831
